FAERS Safety Report 6106111-7 (Version None)
Quarter: 2009Q1

REPORT INFORMATION
  Report Type: 
  Country: None (occurrence: None)
  Receive Date: 20090227
  Receipt Date: 20080620
  Transmission Date: 20090719
  Serious: Yes (Other)
  Sender: FDA-Public Use
  Company Number: 173381USA

PATIENT
  Age: 54 Year
  Sex: Male
  Weight: 85.7298 kg

DRUGS (3)
  1. PROPOFOL [Suspect]
     Indication: SEDATION
     Dosage: SEE IMAGE
     Route: 042
  2. MIDAZOLAM HYDROCHLORIDE [Suspect]
     Dosage: (2 MG), INTRAVENOUS (NOT OTHERWISE SPECIFIED)
     Route: 042
  3. ATORVASTATIN CALCIUM [Concomitant]

REACTIONS (5)
  - EYE MOVEMENT DISORDER [None]
  - HYPERTENSION [None]
  - MYOCLONUS [None]
  - OPISTHOTONUS [None]
  - OXYGEN SATURATION DECREASED [None]
